FAERS Safety Report 4647159-9 (Version None)
Quarter: 2005Q2

REPORT INFORMATION
  Report Type: 
  Country: None (occurrence: None)
  Receive Date: 20050425
  Receipt Date: 20050420
  Transmission Date: 20051028
  Serious: Yes (Hospitalization)
  Sender: FDA-Public Use
  Company Number: OMPQ-PR-0504S-0676

PATIENT
  Age: 60 Year
  Sex: Male

DRUGS (1)
  1. OMNIPAQUE 140 [Suspect]
     Indication: HEPATIC NEOPLASM MALIGNANT
     Dosage: 100 ML, SINGLE DOSE, EXTRAVASATION
     Dates: start: 20040416, end: 20040416

REACTIONS (1)
  - COMPARTMENT SYNDROME [None]
